FAERS Safety Report 12870420 (Version 1)
Quarter: 2016Q4

REPORT INFORMATION
  Report Type: Report from Study
  Country: US (occurrence: US)
  Receive Date: 20161020
  Receipt Date: 20161020
  Transmission Date: 20170207
  Serious: No
  Sender: FDA-Public Use
  Company Number: US-AMGEN-USASL2016121196

PATIENT
  Age: 66 Year
  Sex: Male
  Weight: 86.6 kg

DRUGS (10)
  1. CVS ASPIRIN [Concomitant]
     Active Substance: ASPIRIN
     Dosage: 81 MG, QD
     Route: 048
  2. BRILINTA [Concomitant]
     Active Substance: TICAGRELOR
     Dosage: 90 MG, BID
     Route: 048
  3. POTASSIUM CHLORIDE. [Concomitant]
     Active Substance: POTASSIUM CHLORIDE
     Dosage: 20 MEQ, QD
     Route: 048
  4. CORLANOR [Suspect]
     Active Substance: IVABRADINE HYDROCHLORIDE
     Indication: PRODUCT USED FOR UNKNOWN INDICATION
     Dosage: 5 MG, BID
     Route: 048
  5. FUROSEMIDE. [Concomitant]
     Active Substance: FUROSEMIDE
     Dosage: 40 MG, QD
     Route: 048
  6. RANEXA [Concomitant]
     Active Substance: RANOLAZINE
     Dosage: 500 MG, BID
     Route: 048
  7. LISINOPRIL. [Concomitant]
     Active Substance: LISINOPRIL
     Dosage: 2.5 MG, QD
     Route: 048
  8. PANTOPRAZOLE SODIUM. [Concomitant]
     Active Substance: PANTOPRAZOLE SODIUM
     Dosage: 40 MG, UNK
     Route: 048
  9. ATORVASTATIN CALCIUM. [Concomitant]
     Active Substance: ATORVASTATIN CALCIUM
     Dosage: 80 MG, QD
     Route: 048
  10. METOPROLOL TARTRATE. [Concomitant]
     Active Substance: METOPROLOL TARTRATE
     Dosage: 25 MG, BID
     Route: 048

REACTIONS (3)
  - Chest discomfort [Unknown]
  - Fatigue [Unknown]
  - Chest pain [Not Recovered/Not Resolved]
